FAERS Safety Report 21616229 (Version 1)
Quarter: 2022Q4

REPORT INFORMATION
  Report Type: Spontaneous
  Country: US (occurrence: None)
  Receive Date: 20221117
  Receipt Date: 20221117
  Transmission Date: 20230113
  Serious: No
  Sender: FDA-Public Use
  Company Number: None

PATIENT
  Sex: Female
  Weight: 71.67 kg

DRUGS (13)
  1. IBRANCE [Suspect]
     Active Substance: PALBOCICLIB
     Indication: Breast cancer female
     Dosage: FREQUENCY : DAILY;?OTHER ROUTE : QD 21 D ON, 7 D OFF;?
     Route: 050
     Dates: start: 20221016
  2. AMLODIPINE [Concomitant]
     Active Substance: AMLODIPINE BESYLATE
  3. ASPIRIN [Concomitant]
     Active Substance: ASPIRIN
  4. ATENOLOL [Concomitant]
     Active Substance: ATENOLOL
  5. SACCHAROMYCES CEREVISIAE [Concomitant]
     Active Substance: SACCHAROMYCES CEREVISIAE
  6. Fluicasone [Concomitant]
  7. FULVESTRANT [Concomitant]
     Active Substance: FULVESTRANT
  8. OMEPRAZOLE [Concomitant]
     Active Substance: OMEPRAZOLE
  9. Telmisatan and Hydrochlorothiazide [Concomitant]
  10. TRAMADOL [Concomitant]
     Active Substance: TRAMADOL
  11. XANAX [Concomitant]
     Active Substance: ALPRAZOLAM
  12. ZOFRAN [Concomitant]
     Active Substance: ONDANSETRON HYDROCHLORIDE
  13. ZYRTEC [Concomitant]
     Active Substance: CETIRIZINE HYDROCHLORIDE

REACTIONS (1)
  - Renal function test abnormal [None]
